FAERS Safety Report 16318666 (Version 2)
Quarter: 2020Q1

REPORT INFORMATION
  Report Type: Spontaneous
  Country: IT (occurrence: IT)
  Receive Date: 20190516
  Receipt Date: 20200324
  Transmission Date: 20200409
  Serious: Yes (Disabling)
  Sender: FDA-Public Use
  Company Number: IT-AMGEN-ITASP2019074595

PATIENT
  Age: 72 Year
  Sex: Female

DRUGS (13)
  1. DELTACORTENE [Concomitant]
     Active Substance: PREDNISONE
     Dosage: 2.5 MILLIGRAM, QD
  2. PROLIA [Suspect]
     Active Substance: DENOSUMAB
     Indication: OSTEOPOROSIS
     Dosage: UNK
     Route: 058
  3. DIBASE [Concomitant]
     Active Substance: CHOLECALCIFEROL
     Dosage: 100.000 U.I./ML
  4. RIOPAN [PIROXICAM] [Concomitant]
     Active Substance: PIROXICAM
  5. LIMPIDEX [Concomitant]
     Active Substance: LANSOPRAZOLE
  6. KESTINE [Concomitant]
     Active Substance: EBASTINE
     Dosage: 10 MILLIGRAM
  7. SERETIDE [Concomitant]
     Active Substance: FLUTICASONE PROPIONATE\SALMETEROL XINAFOATE
  8. SINGULAIR [Concomitant]
     Active Substance: MONTELUKAST SODIUM
     Dosage: 4 MILLIGRAM
  9. CRESTOR [Concomitant]
     Active Substance: ROSUVASTATIN CALCIUM
     Dosage: 5 MILLIGRAM
  10. ROCALTROL [Concomitant]
     Active Substance: CALCITRIOL
  11. SINTROM [Concomitant]
     Active Substance: ACENOCOUMAROL
  12. AZATHIOPRINE. [Concomitant]
     Active Substance: AZATHIOPRINE
  13. OROTRE [Concomitant]

REACTIONS (2)
  - Drug ineffective [Recovered/Resolved with Sequelae]
  - Vertebral lesion [Recovered/Resolved with Sequelae]

NARRATIVE: CASE EVENT DATE: 201809
